FAERS Safety Report 4285884-2 (Version None)
Quarter: 2004Q1

REPORT INFORMATION
  Report Type: 
  Country: None (occurrence: None)
  Receive Date: 20040203
  Receipt Date: 20040128
  Transmission Date: 20041129
  Serious: Yes (Hospitalization)
  Sender: FDA-Public Use
  Company Number: STA-AE-04-MTX-034

PATIENT
  Age: 71 Year
  Sex: Male

DRUGS (4)
  1. METHOTREXATE [Suspect]
     Dosage: 12 MG, ORAL
     Route: 048
     Dates: start: 20010615
  2. ENBREL [Suspect]
     Dosage: SC
     Dates: start: 20031128, end: 20031121
  3. ACTONEL [Suspect]
     Dosage: ORAL
     Route: 048
     Dates: start: 20031031
  4. PREDNISONE [Suspect]
     Dosage: ORAL
     Route: 048
     Dates: start: 20010615

REACTIONS (1)
  - EPILEPSY [None]
